FAERS Safety Report 20666677 (Version 1)
Quarter: 2022Q2

REPORT INFORMATION
  Report Type: Spontaneous
  Country: GB (occurrence: GB)
  Receive Date: 20220403
  Receipt Date: 20220403
  Transmission Date: 20220721
  Serious: Yes (Other)
  Sender: FDA-Public Use
  Company Number: GB-MHRA-EYC 00255797

PATIENT
  Age: 35 Year
  Sex: Male
  Weight: 94.34 kg

DRUGS (1)
  1. FLUOXETINE [Suspect]
     Active Substance: FLUOXETINE HYDROCHLORIDE
     Indication: Panic attack
     Dosage: 20 MILLIGRAM
     Route: 048
     Dates: start: 20210622, end: 20210706

REACTIONS (3)
  - Swelling of eyelid [Not Recovered/Not Resolved]
  - Blister [Not Recovered/Not Resolved]
  - Rash pruritic [Not Recovered/Not Resolved]

NARRATIVE: CASE EVENT DATE: 20210701
